FAERS Safety Report 5726274-2 (Version None)
Quarter: 2008Q2

REPORT INFORMATION
  Report Type: 
  Country: None (occurrence: None)
  Receive Date: 20080501
  Receipt Date: 20080501
  Transmission Date: 20081010
  Serious: Yes (Hospitalization)
  Sender: FDA-Public Use
  Company Number: None

PATIENT
  Age: 61 Year
  Sex: Male

DRUGS (2)
  1. TACROLIMUS [Suspect]
     Dosage: 1 MG   BID  PO
     Route: 048
     Dates: start: 19971202, end: 20080310
  2. OMEPRAZOLE [Suspect]
     Dosage: 20 MG  EVERY DAY  PO
     Route: 048
     Dates: start: 20040203

REACTIONS (2)
  - JAUNDICE [None]
  - RENAL FAILURE ACUTE [None]
